FAERS Safety Report 11062964 (Version 1)
Quarter: 2015Q2

REPORT INFORMATION
  Report Type: Report from Study
  Country: BR (occurrence: BR)
  Receive Date: 20150424
  Receipt Date: 20150424
  Transmission Date: 20150821
  Serious: Yes (Hospitalization, Other)
  Sender: FDA-Public Use
  Company Number: PHHY2015BR047709

PATIENT
  Sex: Male
  Weight: 80 kg

DRUGS (3)
  1. SANDOSTATIN LAR DEPOT [Suspect]
     Active Substance: OCTREOTIDE ACETATE
     Dosage: 30 MG (1 AMPOULE), EVERY 28 DAYS
     Route: 065
  2. GLIFAGE [Concomitant]
     Active Substance: METFORMIN HYDROCHLORIDE
     Indication: DIABETES PROPHYLAXIS
     Dosage: 1 DF, QHS
     Route: 065
  3. SANDOSTATIN LAR DEPOT [Suspect]
     Active Substance: OCTREOTIDE ACETATE
     Indication: ACROMEGALY
     Dosage: 30 MG (1 AMPOULE), EVERY 30 DAYS
     Route: 065
     Dates: start: 2011

REACTIONS (5)
  - Headache [Recovered/Resolved]
  - Cardiac disorder [Not Recovered/Not Resolved]
  - Brain neoplasm [Not Recovered/Not Resolved]
  - Blood cholesterol increased [Not Recovered/Not Resolved]
  - Dizziness [Recovered/Resolved]
